FAERS Safety Report 13492324 (Version 2)
Quarter: 2017Q2

REPORT INFORMATION
  Report Type: Spontaneous
  Country: US (occurrence: US)
  Receive Date: 20170427
  Receipt Date: 20170619
  Transmission Date: 20170830
  Serious: No
  Sender: FDA-Public Use
  Company Number: US-PFIZER INC-2017179965

PATIENT
  Age: 63 Year
  Sex: Female

DRUGS (1)
  1. XELJANZ [Suspect]
     Active Substance: TOFACITINIB CITRATE
     Indication: RHEUMATOID ARTHRITIS
     Dosage: 5 MG, 2X/DAY

REACTIONS (7)
  - Drug ineffective [Unknown]
  - Cough [Unknown]
  - Dyspepsia [Unknown]
  - Influenza like illness [Unknown]
  - Malaise [Unknown]
  - Sneezing [Unknown]
  - Pyrexia [Unknown]
